FAERS Safety Report 10089216 (Version 2)
Quarter: 2014Q2

REPORT INFORMATION
  Report Type: Spontaneous
  Country: US (occurrence: US)
  Receive Date: 20140421
  Receipt Date: 20140421
  Transmission Date: 20141212
  Serious: No
  Sender: FDA-Public Use
  Company Number: US-DRREDDYS-USA/USA/14/0037077

PATIENT
  Age: 41 Year
  Sex: Male
  Weight: 90.7 kg

DRUGS (2)
  1. ZENATANE [Suspect]
     Indication: ACNE
     Route: 048
     Dates: start: 2013, end: 20140103
  2. METOPROLOL SUCCINATE [Concomitant]
     Indication: PRODUCT USED FOR UNKNOWN INDICATION
     Route: 065

REACTIONS (5)
  - Blood glucose increased [Not Recovered/Not Resolved]
  - Lipids increased [Not Recovered/Not Resolved]
  - Dry skin [Not Recovered/Not Resolved]
  - Lip dry [Not Recovered/Not Resolved]
  - Liver function test abnormal [Not Recovered/Not Resolved]
